FAERS Safety Report 5311707-6 (Version None)
Quarter: 2007Q1

REPORT INFORMATION
  Report Type: 
  Country: None (occurrence: None)
  Receive Date: 20070201
  Receipt Date: 20061220
  Transmission Date: 20070707
  Serious: No
  Sender: FDA-Public Use
  Company Number: 259671

PATIENT
  Age: 81 Year
  Sex: Male
  Weight: 75.7 kg

DRUGS (1)
  1. LEVEMIR [Suspect]
     Indication: DIABETES MELLITUS INSULIN-DEPENDENT
     Dosage: 30 IU, QD, SUBCUTANEOUS
     Route: 058
     Dates: start: 20061101

REACTIONS (1)
  - INJECTION SITE HAEMORRHAGE [None]
